FAERS Safety Report 11292569 (Version 1)
Quarter: 2015Q3

REPORT INFORMATION
  Report Type: Spontaneous
  Country: CZ (occurrence: CZ)
  Receive Date: 20150722
  Receipt Date: 20150722
  Transmission Date: 20151125
  Serious: Yes (Other)
  Sender: FDA-Public Use
  Company Number: CZ-TEVA-578086ISR

PATIENT
  Age: 59 Year
  Sex: Female

DRUGS (3)
  1. BEVACIZUMAB [Concomitant]
     Active Substance: BEVACIZUMAB
     Route: 042
     Dates: start: 200907, end: 201001
  2. CAPECITABINE. [Concomitant]
     Active Substance: CAPECITABINE
     Route: 042
     Dates: start: 200907, end: 201004
  3. OXALIPLATIN. [Suspect]
     Active Substance: OXALIPLATIN
     Route: 042
     Dates: start: 200907, end: 201001

REACTIONS (4)
  - Toxic neuropathy [Recovered/Resolved]
  - Nausea [Recovered/Resolved]
  - Implant site thrombosis [Recovered/Resolved]
  - Conjunctivitis [Recovered/Resolved]

NARRATIVE: CASE EVENT DATE: 2009
